FAERS Safety Report 18858129 (Version 1)
Quarter: 2021Q1

REPORT INFORMATION
  Report Type: Spontaneous
  Country: IQ (occurrence: IQ)
  Receive Date: 20210208
  Receipt Date: 20210208
  Transmission Date: 20210420
  Serious: Yes (Hospitalization, Other)
  Sender: FDA-Public Use
  Company Number: IQ-EPICPHARMA-IQ-2021EPCLIT00091

PATIENT
  Age: 64 Year
  Sex: Female

DRUGS (8)
  1. AZITHROMYCIN ANHYDROUS. [Suspect]
     Active Substance: AZITHROMYCIN ANHYDROUS
     Indication: SUSPECTED COVID-19
     Route: 065
  2. DIGOXIN. [Suspect]
     Active Substance: DIGOXIN
     Indication: MITRAL VALVE INCOMPETENCE
  3. ATROPINE. [Interacting]
     Active Substance: ATROPINE
     Route: 065
  4. DIGOXIN. [Suspect]
     Active Substance: DIGOXIN
     Indication: ATRIAL FIBRILLATION
     Route: 065
  5. WARFARIN [Suspect]
     Active Substance: WARFARIN
     Indication: ATRIAL FIBRILLATION
     Route: 065
  6. HYDROXYCHLOROQUINE [Suspect]
     Active Substance: HYDROXYCHLOROQUINE
     Indication: SUSPECTED COVID-19
     Route: 065
  7. WARFARIN [Suspect]
     Active Substance: WARFARIN
     Indication: MITRAL VALVE INCOMPETENCE
  8. ATROPINE. [Interacting]
     Active Substance: ATROPINE
     Route: 065

REACTIONS (4)
  - Electrocardiogram QT prolonged [Recovered/Resolved]
  - Drug interaction [Unknown]
  - Atrioventricular block complete [Recovered/Resolved]
  - Toxicity to various agents [Unknown]
